FAERS Safety Report 5605767-2 (Version None)
Quarter: 2008Q1

REPORT INFORMATION
  Report Type: 
  Country: None (occurrence: None)
  Receive Date: 20080123
  Receipt Date: 20080115
  Transmission Date: 20080703
  Serious: Yes (Hospitalization)
  Sender: FDA-Public Use
  Company Number: WAES 0710DEU00187

PATIENT
  Age: 77 Year
  Sex: Female

DRUGS (1)
  1. SINGULAIR [Suspect]
     Indication: ASTHMA
     Dosage: 10 MG/DAILY PO
     Route: 048
     Dates: start: 20070514, end: 20070801

REACTIONS (1)
  - NO ADVERSE EVENT [None]
